FAERS Safety Report 5453959-8 (Version None)
Quarter: 2007Q3

REPORT INFORMATION
  Report Type: 
  Country: None (occurrence: None)
  Receive Date: 20070917
  Receipt Date: 20070228
  Transmission Date: 20080115
  Serious: Yes (Hospitalization, Disabling, Other)
  Sender: FDA-Public Use
  Company Number: US-ASTRAZENECA-2006UW03808

PATIENT
  Sex: Female
  Weight: 52.3 kg

DRUGS (8)
  1. SEROQUEL [Suspect]
     Indication: BIPOLAR DISORDER
     Route: 048
     Dates: start: 20000713, end: 20000810
  2. ZYPREXA [Suspect]
     Indication: BIPOLAR DISORDER
     Dates: start: 20000915, end: 20001204
  3. RISPERDAL [Concomitant]
     Indication: BIPOLAR DISORDER
     Dates: start: 20001215, end: 20001229
  4. ABILIFY [Concomitant]
     Dates: start: 20040101, end: 20040201
  5. DEPAKOTE [Concomitant]
  6. NEURONTIN [Concomitant]
  7. ZOLOFT [Concomitant]
  8. PAXIL [Concomitant]

REACTIONS (2)
  - DIABETES MELLITUS [None]
  - KETOACIDOSIS [None]
